FAERS Safety Report 23766617 (Version 1)
Quarter: 2024Q2

REPORT INFORMATION
  Report Type: Spontaneous
  Country: US (occurrence: US)
  Receive Date: 20240422
  Receipt Date: 20240422
  Transmission Date: 20240717
  Serious: No
  Sender: FDA-Public Use
  Company Number: US-ABBVIE-5724160

PATIENT
  Age: 67 Year
  Sex: Female

DRUGS (1)
  1. UBRELVY [Suspect]
     Active Substance: UBROGEPANT
     Indication: Migraine prophylaxis
     Route: 048

REACTIONS (2)
  - Unevaluable event [Unknown]
  - Adverse drug reaction [Unknown]
